FAERS Safety Report 7375904-0 (Version None)
Quarter: 2011Q1

REPORT INFORMATION
  Report Type: 
  Country: None (occurrence: None)
  Receive Date: 20110325
  Receipt Date: 20110317
  Transmission Date: 20110831
  Serious: Yes (Hospitalization)
  Sender: FDA-Public Use
  Company Number: B0706527A

PATIENT
  Sex: Male

DRUGS (3)
  1. GEMZAR [Suspect]
     Route: 042
     Dates: start: 20090501, end: 20110118
  2. TAHOR [Suspect]
     Route: 048
     Dates: end: 20110201
  3. ARIXTRA [Suspect]
     Route: 065
     Dates: start: 20101001, end: 20110201

REACTIONS (6)
  - LUNG DISORDER [None]
  - NON-CARDIOGENIC PULMONARY OEDEMA [None]
  - RESPIRATORY DISTRESS [None]
  - PLEURAL EFFUSION [None]
  - EMPHYSEMA [None]
  - INCORRECT DRUG ADMINISTRATION DURATION [None]
